FAERS Safety Report 25211327 (Version 2)
Quarter: 2025Q2

REPORT INFORMATION
  Report Type: Spontaneous
  Country: US (occurrence: US)
  Receive Date: 20250417
  Receipt Date: 20250627
  Transmission Date: 20250716
  Serious: No
  Sender: NOVARTIS
  Company Number: US-002147023-NVSC2025US063917

PATIENT
  Sex: Male

DRUGS (1)
  1. MEKINIST [Suspect]
     Active Substance: TRAMETINIB DIMETHYL SULFOXIDE
     Indication: Brain cancer metastatic
     Dosage: 1.5 MG, QD
     Route: 048
     Dates: start: 20250317, end: 202506

REACTIONS (2)
  - Fungal skin infection [Unknown]
  - Drug ineffective [Unknown]
